FAERS Safety Report 10958615 (Version 1)
Quarter: 2015Q1

REPORT INFORMATION
  Report Type: Spontaneous
  Country: FR (occurrence: FR)
  Receive Date: 20150326
  Receipt Date: 20150326
  Transmission Date: 20150721
  Serious: Yes (Death)
  Sender: FDA-Public Use
  Company Number: PHHY2015FR036212

PATIENT
  Age: 83 Year
  Sex: Male

DRUGS (1)
  1. LEPONEX [Suspect]
     Active Substance: CLOZAPINE
     Indication: ABNORMAL BEHAVIOUR
     Dosage: 25 MG, QD
     Route: 048
     Dates: start: 20141205

REACTIONS (2)
  - Death [Fatal]
  - Eosinophilia [Fatal]

NARRATIVE: CASE EVENT DATE: 20141229
